FAERS Safety Report 8370017-3 (Version None)
Quarter: 2012Q2

REPORT INFORMATION
  Report Type: 
  Country: None (occurrence: None)
  Receive Date: 20120518
  Receipt Date: 20120516
  Transmission Date: 20120825
  Serious: Yes (Hospitalization, Other)
  Sender: FDA-Public Use
  Company Number: US-AMGEN-KDL438258

PATIENT
  Age: 67 Year
  Sex: Female

DRUGS (6)
  1. COZAAR [Concomitant]
     Dosage: UNK
  2. SYNTHROID [Concomitant]
     Dosage: UNK
  3. ESTRACE [Concomitant]
     Dosage: UNK
  4. CRESTOR [Concomitant]
     Dosage: UNK
  5. ENBREL [Suspect]
     Indication: PSORIASIS
     Dosage: UNK
     Dates: start: 20060101
  6. ENBREL [Suspect]
     Indication: POLYMYALGIA RHEUMATICA

REACTIONS (1)
  - JOINT DESTRUCTION [None]
